FAERS Safety Report 8240501-1 (Version None)
Quarter: 2012Q1

REPORT INFORMATION
  Report Type: 
  Country: None (occurrence: None)
  Receive Date: 20120328
  Receipt Date: 20120314
  Transmission Date: 20120608
  Serious: Yes (Death, Life-Threatening)
  Sender: FDA-Public Use
  Company Number: DE-FRI-1000025399

PATIENT
  Age: 81 Year
  Sex: Male
  Weight: 62 kg

DRUGS (14)
  1. FUROSEMIDE [Concomitant]
     Dosage: 30 MG
     Dates: start: 20110726
  2. SPIRIVA [Concomitant]
     Dosage: 18 MCG
     Route: 055
     Dates: start: 20110726
  3. OXYGEN [Concomitant]
     Dosage: 2 L
  4. PREDNISOLONE [Concomitant]
  5. RAMIPRIL [Concomitant]
     Dosage: 2.5 MG
     Dates: start: 20110726
  6. BAMBEC [Concomitant]
  7. ROFLUMILAST [Suspect]
     Indication: RESPIRATORY FAILURE
  8. VENTOLAIR [Concomitant]
     Dosage: 200 MCG
     Dates: start: 20110726
  9. HALDOL [Concomitant]
     Dosage: 10 GTT
     Dates: start: 20110726
  10. FOSTER [Concomitant]
     Dosage: 200 MCG
     Route: 055
  11. FORADIL [Concomitant]
     Dosage: 24 MCG
     Dates: start: 20110726
  12. BERODUAL [Concomitant]
  13. ROFLUMILAST [Suspect]
     Indication: CHRONIC OBSTRUCTIVE PULMONARY DISEASE
     Dosage: 500 MCG
     Route: 048
     Dates: start: 20110726, end: 20110810
  14. OMEPRAZOLE [Concomitant]
     Dosage: 20 MG
     Dates: start: 20110726

REACTIONS (2)
  - COMPLETED SUICIDE [None]
  - DEPRESSION [None]
